FAERS Safety Report 5510061-4 (Version None)
Quarter: 2007Q4

REPORT INFORMATION
  Report Type: 
  Country: None (occurrence: None)
  Receive Date: 20071106
  Receipt Date: 20071031
  Transmission Date: 20080405
  Serious: Yes (Death, Hospitalization)
  Sender: FDA-Public Use
  Company Number: 144-C5013-07070493

PATIENT
  Age: 52 Year
  Sex: Male
  Weight: 85.5 kg

DRUGS (1)
  1. CC-5013 (LENALIDOMIDE) [Suspect]
     Indication: NON-HODGKIN'S LYMPHOMA
     Dosage: 25 MG, EVERY DAY, DURING 21 DAYS
     Dates: start: 20070704, end: 20070708

REACTIONS (3)
  - DISEASE PROGRESSION [None]
  - PANCYTOPENIA [None]
  - PNEUMONIA [None]
